FAERS Safety Report 4313116-5 (Version None)
Quarter: 2004Q1

REPORT INFORMATION
  Report Type: 
  Country: None (occurrence: None)
  Receive Date: 20040305
  Receipt Date: 20040305
  Transmission Date: 20041129
  Serious: Yes (Hospitalization)
  Sender: FDA-Public Use
  Company Number: None

PATIENT
  Age: 51 Year
  Sex: Male

DRUGS (9)
  1. CISPLATIN [Suspect]
     Indication: BONE SARCOMA
     Dosage: 207 MG IV
     Route: 042
     Dates: start: 20040127, end: 20040129
  2. ADRIAMYCIN PFS [Concomitant]
  3. MANNITOL [Concomitant]
  4. DECADRON [Concomitant]
  5. LORAZEPAM [Concomitant]
  6. KYTRIL [Concomitant]
  7. METOPROLOL [Concomitant]
  8. PROTONIX [Concomitant]
  9. PHENERGAN [Concomitant]

REACTIONS (1)
  - RENAL FAILURE ACUTE [None]
